FAERS Safety Report 13617852 (Version 1)
Quarter: 2017Q2

REPORT INFORMATION
  Report Type: Spontaneous
  Country: US (occurrence: US)
  Receive Date: 20170606
  Receipt Date: 20170606
  Transmission Date: 20170830
  Serious: Yes (Other)
  Sender: FDA-Public Use
  Company Number: US-TARO-2016TAR00646

PATIENT
  Age: 7 Month
  Sex: Female

DRUGS (1)
  1. FEVERALL [Suspect]
     Active Substance: ACETAMINOPHEN
     Indication: PYREXIA
     Dosage: 1 DOSAGE UNITS, ONCE
     Route: 054
     Dates: start: 20160718, end: 20160718

REACTIONS (3)
  - Blister [Not Recovered/Not Resolved]
  - Erythema [Unknown]
  - Tenderness [Unknown]

NARRATIVE: CASE EVENT DATE: 201607
